FAERS Safety Report 7763786-4 (Version None)
Quarter: 2011Q3

REPORT INFORMATION
  Report Type: 
  Country: None (occurrence: None)
  Receive Date: 20110919
  Receipt Date: 20110909
  Transmission Date: 20111222
  Serious: Yes (Other)
  Sender: FDA-Public Use
  Company Number: 7081962

PATIENT
  Sex: Female

DRUGS (1)
  1. LEVOTHYROXINE SODIUM [Suspect]
     Indication: PRODUCT USED FOR UNKNOWN INDICATION
     Dosage: 137 MCG, ORAL
     Route: 048

REACTIONS (4)
  - DIARRHOEA [None]
  - INSOMNIA [None]
  - CARDIAC FIBRILLATION [None]
  - RESTLESSNESS [None]
